FAERS Safety Report 7198515-9 (Version None)
Quarter: 2010Q4

REPORT INFORMATION
  Report Type: 
  Country: None (occurrence: None)
  Receive Date: 20101227
  Receipt Date: 20101222
  Transmission Date: 20110411
  Serious: Yes (Death)
  Sender: FDA-Public Use
  Company Number: PHEH2010US01378

PATIENT
  Sex: Female

DRUGS (2)
  1. EXJADE [Suspect]
     Indication: MYELODYSPLASTIC SYNDROME
     Dosage: 2000 MG, DAILY
     Route: 048
     Dates: start: 20091101, end: 20100210
  2. EXJADE [Suspect]
     Dosage: 1000 MG, QD
     Route: 048
     Dates: start: 20091125, end: 20091201

REACTIONS (3)
  - DEATH [None]
  - DIARRHOEA [None]
  - MUSCLE SPASMS [None]
